FAERS Safety Report 17946237 (Version 1)
Quarter: 2020Q2

REPORT INFORMATION
  Report Type: Spontaneous
  Country: US (occurrence: US)
  Receive Date: 20200625
  Receipt Date: 20200625
  Transmission Date: 20200714
  Serious: No
  Sender: FDA-Public Use
  Company Number: US-VIRTUS PHARMACEUTICALS, LLC-2019VTS00054

PATIENT
  Age: 54 Year
  Sex: Female
  Weight: 63.49 kg

DRUGS (9)
  1. PROGESTERONE. [Suspect]
     Active Substance: PROGESTERONE
     Dosage: 200 MG, 1X/DAY
     Route: 048
     Dates: start: 201812, end: 201901
  2. PROGESTERONE (COMPOUNDED) [Suspect]
     Active Substance: PROGESTERONE
     Indication: HORMONE REPLACEMENT THERAPY
     Dosage: 150 MG, 1X/DAY
     Dates: start: 201901, end: 2019
  3. PROGESTERONE (COMPOUNDED) [Suspect]
     Active Substance: PROGESTERONE
     Dosage: 125 MG, 1X/DAY
     Dates: start: 2019, end: 2019
  4. MULTIVITAMIN [Concomitant]
     Active Substance: VITAMINS
  5. CALCIUM [Concomitant]
     Active Substance: CALCIUM
  6. PROGESTERONE. [Suspect]
     Active Substance: PROGESTERONE
     Indication: HORMONE REPLACEMENT THERAPY
     Dosage: 100 MG, 1X/DAY
     Route: 048
     Dates: start: 201804, end: 201812
  7. ESTRADIOL. [Concomitant]
     Active Substance: ESTRADIOL
  8. PROGESTERONE. [Suspect]
     Active Substance: PROGESTERONE
     Dosage: 100 MG, 1X/DAY
     Dates: start: 2019, end: 201905
  9. LISINOPRIL. [Concomitant]
     Active Substance: LISINOPRIL
     Indication: BLOOD PRESSURE MEASUREMENT

REACTIONS (4)
  - Vaginal haemorrhage [Recovered/Resolved]
  - Hangover [Unknown]
  - Nausea [Unknown]
  - Off label use [Recovered/Resolved]

NARRATIVE: CASE EVENT DATE: 201804
